FAERS Safety Report 14575870 (Version 6)
Quarter: 2025Q3

REPORT INFORMATION
  Report Type: Spontaneous
  Country: CA (occurrence: None)
  Receive Date: 20180227
  Receipt Date: 20250804
  Transmission Date: 20251020
  Serious: Yes (Hospitalization, Other)
  Sender: ORION
  Company Number: CA-ORION CORPORATION ORION PHARMA-TREX2018-0555

PATIENT
  Age: 37 Year
  Sex: Female

DRUGS (36)
  1. METHOTREXATE [Suspect]
     Active Substance: METHOTREXATE
     Indication: Product used for unknown indication
  2. METHOTREXATE [Suspect]
     Active Substance: METHOTREXATE
  3. ENBREL [Suspect]
     Active Substance: ETANERCEPT
     Indication: Product used for unknown indication
  4. ENBREL [Suspect]
     Active Substance: ETANERCEPT
  5. XOLAIR [Suspect]
     Active Substance: OMALIZUMAB
     Indication: Chronic spontaneous urticaria
  6. XOLAIR [Suspect]
     Active Substance: OMALIZUMAB
  7. OMALIZUMAB [Suspect]
     Active Substance: OMALIZUMAB
     Indication: Chronic spontaneous urticaria
  8. OMALIZUMAB [Suspect]
     Active Substance: OMALIZUMAB
  9. OMALIZUMAB [Suspect]
     Active Substance: OMALIZUMAB
     Dosage: 150 MILLIGRAM, 2 TIMES/WEEK
  10. OMALIZUMAB [Suspect]
     Active Substance: OMALIZUMAB
     Dosage: 300 MILLIGRAM, 2 TIMES/WEEK
  11. OMALIZUMAB [Suspect]
     Active Substance: OMALIZUMAB
  12. OMALIZUMAB [Suspect]
     Active Substance: OMALIZUMAB
  13. OMALIZUMAB [Suspect]
     Active Substance: OMALIZUMAB
  14. OMALIZUMAB [Suspect]
     Active Substance: OMALIZUMAB
  15. OMALIZUMAB [Suspect]
     Active Substance: OMALIZUMAB
  16. OMALIZUMAB [Suspect]
     Active Substance: OMALIZUMAB
  17. OMALIZUMAB [Suspect]
     Active Substance: OMALIZUMAB
  18. OMALIZUMAB [Suspect]
     Active Substance: OMALIZUMAB
  19. OMALIZUMAB [Suspect]
     Active Substance: OMALIZUMAB
  20. OMALIZUMAB [Suspect]
     Active Substance: OMALIZUMAB
  21. OMALIZUMAB [Suspect]
     Active Substance: OMALIZUMAB
  22. REMICADE [Suspect]
     Active Substance: INFLIXIMAB
     Indication: Product used for unknown indication
  23. OTEZLA [Suspect]
     Active Substance: APREMILAST
     Indication: Product used for unknown indication
  24. METOPROLOL TARTRATE [Concomitant]
     Active Substance: METOPROLOL TARTRATE
     Indication: Product used for unknown indication
  25. EBASTINE [Concomitant]
     Active Substance: EBASTINE
  26. EBASTINE [Concomitant]
     Active Substance: EBASTINE
  27. KETOTIFEN FUMARATE [Concomitant]
     Active Substance: KETOTIFEN FUMARATE
  28. KETOTIFEN FUMARATE [Concomitant]
     Active Substance: KETOTIFEN FUMARATE
  29. LIORESAL [Concomitant]
     Active Substance: BACLOFEN
  30. REACTINE [Concomitant]
  31. REACTINE [Concomitant]
  32. REACTINE [Concomitant]
  33. EBASTINE [Concomitant]
     Active Substance: EBASTINE
  34. EBASTINE [Concomitant]
     Active Substance: EBASTINE
  35. EBASTINE [Concomitant]
     Active Substance: EBASTINE
  36. REPAGLINIDE [Concomitant]
     Active Substance: REPAGLINIDE

REACTIONS (39)
  - Drug ineffective [Not Recovered/Not Resolved]
  - Addison^s disease [Not Recovered/Not Resolved]
  - Blood pressure increased [Not Recovered/Not Resolved]
  - Chest discomfort [Not Recovered/Not Resolved]
  - Dyspnoea [Not Recovered/Not Resolved]
  - Fatigue [Not Recovered/Not Resolved]
  - Generalised oedema [Not Recovered/Not Resolved]
  - Heart rate increased [Not Recovered/Not Resolved]
  - Mechanical urticaria [Not Recovered/Not Resolved]
  - Middle insomnia [Not Recovered/Not Resolved]
  - Pain [Not Recovered/Not Resolved]
  - Palpitations [Not Recovered/Not Resolved]
  - Peripheral swelling [Not Recovered/Not Resolved]
  - Temperature intolerance [Not Recovered/Not Resolved]
  - Visual impairment [Not Recovered/Not Resolved]
  - Pyrexia [Not Recovered/Not Resolved]
  - Urticaria [Not Recovered/Not Resolved]
  - Angioedema [Not Recovered/Not Resolved]
  - Chronic sinusitis [Recovered/Resolved]
  - Pyelonephritis [Recovered/Resolved]
  - Arthralgia [Not Recovered/Not Resolved]
  - Autoimmune hepatitis [Not Recovered/Not Resolved]
  - Bronchitis [Not Recovered/Not Resolved]
  - COVID-19 [Not Recovered/Not Resolved]
  - Diarrhoea [Not Recovered/Not Resolved]
  - Erythema [Not Recovered/Not Resolved]
  - Exposure to SARS-CoV-2 [Not Recovered/Not Resolved]
  - Haematemesis [Not Recovered/Not Resolved]
  - Infection [Not Recovered/Not Resolved]
  - Nausea [Not Recovered/Not Resolved]
  - Oedema peripheral [Not Recovered/Not Resolved]
  - Oropharyngeal pain [Not Recovered/Not Resolved]
  - Pneumonia [Not Recovered/Not Resolved]
  - Pruritus [Not Recovered/Not Resolved]
  - Rash [Not Recovered/Not Resolved]
  - Skin reaction [Not Recovered/Not Resolved]
  - Therapy partial responder [Not Recovered/Not Resolved]
  - Tuberculosis [Not Recovered/Not Resolved]
  - Weight decreased [Not Recovered/Not Resolved]
